FAERS Safety Report 6754345-0 (Version None)
Quarter: 2010Q2

REPORT INFORMATION
  Report Type: 
  Country: None (occurrence: None)
  Receive Date: 20100520
  Receipt Date: 20090929
  Transmission Date: 20101027
  Serious: Yes (Hospitalization, Disabling)
  Sender: FDA-Public Use
  Company Number: 2009277171

PATIENT
  Age: 59 Year
  Sex: Female
  Weight: 77 kg

DRUGS (7)
  1. PROVERA [Suspect]
     Indication: HORMONE REPLACEMENT THERAPY
     Dosage: 2.5 MG, ORAL
     Route: 048
     Dates: start: 19900801, end: 19950401
  2. PREMARIN [Suspect]
     Indication: HORMONE REPLACEMENT THERAPY
     Dosage: 0.625
     Dates: start: 20011120, end: 20011201
  3. PREMPRO [Suspect]
     Indication: HORMONE REPLACEMENT THERAPY
     Dosage: 0.625/2.5MG
     Dates: start: 19990325, end: 20010223
  4. ESTRADERM [Suspect]
     Indication: HORMONE REPLACEMENT THERAPY
     Dosage: 0.05 MG ; 0.25 MG, TWICE A WEEK
     Dates: start: 19900801, end: 19951201
  5. ESTRADERM [Suspect]
     Indication: HORMONE REPLACEMENT THERAPY
     Dosage: 0.05 MG ; 0.25 MG, TWICE A WEEK
     Dates: start: 19911201
  6. PREMARIN [Suspect]
  7. ALBUTEROL [Concomitant]

REACTIONS (1)
  - CEREBROVASCULAR ACCIDENT [None]
